FAERS Safety Report 12758717 (Version 5)
Quarter: 2016Q4

REPORT INFORMATION
  Report Type: Spontaneous
  Country: JP (occurrence: JP)
  Receive Date: 20160919
  Receipt Date: 20161207
  Transmission Date: 20170207
  Serious: Yes (Hospitalization, Other)
  Sender: FDA-Public Use
  Company Number: JP-PFIZER INC-2016430373

PATIENT
  Age: 81 Year
  Sex: Female

DRUGS (1)
  1. CELECOX [Suspect]
     Active Substance: CELECOXIB
     Indication: BACK PAIN
     Dosage: 100 MG, 2X/DAY
     Route: 048
     Dates: start: 20160901, end: 20160912

REACTIONS (7)
  - Rash [Recovering/Resolving]
  - Diarrhoea [Recovering/Resolving]
  - Pruritus [Unknown]
  - White blood cell count increased [Unknown]
  - Erythema multiforme [Recovered/Resolved]
  - Blood creatine increased [Unknown]
  - Blood urea increased [Unknown]

NARRATIVE: CASE EVENT DATE: 20160911
